FAERS Safety Report 7539793-3 (Version None)
Quarter: 2011Q2

REPORT INFORMATION
  Report Type: 
  Country: None (occurrence: None)
  Receive Date: 20110610
  Receipt Date: 20110602
  Transmission Date: 20111010
  Serious: Yes (Other)
  Sender: FDA-Public Use
  Company Number: PHHY2011BR04527

PATIENT
  Sex: Male

DRUGS (2)
  1. CATAFLAM [Suspect]
     Dosage: UNK
  2. RASILEZ [Suspect]
     Dosage: 300 MG
     Route: 048

REACTIONS (3)
  - PROSTATE CANCER [None]
  - JOINT DISLOCATION [None]
  - FALL [None]
